FAERS Safety Report 20623618 (Version 1)
Quarter: 2022Q1

REPORT INFORMATION
  Report Type: Spontaneous
  Country: GB (occurrence: GB)
  Receive Date: 20220322
  Receipt Date: 20220322
  Transmission Date: 20220423
  Serious: Yes (Disabling, Other)
  Sender: FDA-Public Use
  Company Number: None

PATIENT
  Age: 21 Year
  Sex: Female
  Weight: 45 kg

DRUGS (3)
  1. TRAMADOL HYDROCHLORIDE [Suspect]
     Active Substance: TRAMADOL HYDROCHLORIDE
     Indication: Pain
     Dosage: UNK
     Route: 065
     Dates: start: 20220304, end: 20220304
  2. EPILIM [Suspect]
     Active Substance: VALPROATE SODIUM
     Indication: Product used for unknown indication
     Dosage: 200 MILLIGRAM, 1/DAY
     Route: 065
     Dates: start: 20220304
  3. FLUPEN [FLUCLOXACILLIN SODIUM] [Concomitant]
     Indication: Bacterial infection
     Dosage: 250 MILLIGRAM
     Route: 065
     Dates: end: 20220210

REACTIONS (7)
  - Tremor [Not Recovered/Not Resolved]
  - Myoclonus [Not Recovered/Not Resolved]
  - Vision blurred [Not Recovered/Not Resolved]
  - Dizziness [Not Recovered/Not Resolved]
  - Dyspnoea [Not Recovered/Not Resolved]
  - Anxiety [Unknown]
  - Seizure [Unknown]

NARRATIVE: CASE EVENT DATE: 20220304
